FAERS Safety Report 19695308 (Version 3)
Quarter: 2021Q4

REPORT INFORMATION
  Report Type: Report from Study
  Country: US (occurrence: US)
  Receive Date: 20210812
  Receipt Date: 20211130
  Transmission Date: 20220303
  Serious: Yes (Hospitalization, Other)
  Sender: FDA-Public Use
  Company Number: US-SHIRE-US201727413

PATIENT
  Sex: Female
  Weight: 78 kg

DRUGS (23)
  1. HUMAN IMMUNOGLOBULIN G [Suspect]
     Active Substance: HUMAN IMMUNOGLOBULIN G
     Indication: Primary immunodeficiency syndrome
     Dosage: 12 GRAM, 1/WEEK
     Route: 058
     Dates: start: 20210305
  2. HUMAN IMMUNOGLOBULIN G [Suspect]
     Active Substance: HUMAN IMMUNOGLOBULIN G
     Indication: Immunodeficiency common variable
  3. ACETAMINOPHEN [Concomitant]
     Active Substance: ACETAMINOPHEN
  4. DIPHENHYDRAMINE [Concomitant]
     Active Substance: DIPHENHYDRAMINE
  5. LIDOCAINE\PRILOCAINE [Concomitant]
     Active Substance: LIDOCAINE\PRILOCAINE
  6. EPINEPHRINE [Concomitant]
     Active Substance: EPINEPHRINE
  7. LISINOPRIL [Concomitant]
     Active Substance: LISINOPRIL
  8. PREDNISONE [Concomitant]
     Active Substance: PREDNISONE
  9. ATORVASTATIN [Concomitant]
     Active Substance: ATORVASTATIN
  10. OMEPRAZOLE [Concomitant]
     Active Substance: OMEPRAZOLE
  11. MONTELUKAST [Concomitant]
     Active Substance: MONTELUKAST SODIUM
  12. METOPROLOL [Concomitant]
     Active Substance: METOPROLOL
  13. GABAPENTIN [Concomitant]
     Active Substance: GABAPENTIN
  14. ASPIRIN [Concomitant]
     Active Substance: ASPIRIN
  15. IRON [Concomitant]
     Active Substance: IRON
  16. CALCIUM PLUS D3 [Concomitant]
  17. MELOXICAM [Concomitant]
     Active Substance: MELOXICAM
  18. OXYBUTYNIN [Concomitant]
     Active Substance: OXYBUTYNIN
  19. FUROSEMIDE [Concomitant]
     Active Substance: FUROSEMIDE
  20. VITAMIN D2 [Concomitant]
     Active Substance: ERGOCALCIFEROL
  21. TIZANIDINE [Concomitant]
     Active Substance: TIZANIDINE
  22. OXYGEN [Concomitant]
     Active Substance: OXYGEN
  23. TYLENOL [Concomitant]
     Active Substance: ACETAMINOPHEN

REACTIONS (6)
  - Pneumonia [Unknown]
  - Bronchitis [Unknown]
  - Influenza [Unknown]
  - Somnolence [Unknown]
  - Nausea [Unknown]
  - Asthma [Unknown]
